FAERS Safety Report 19241355 (Version 4)
Quarter: 2021Q3

REPORT INFORMATION
  Report Type: Report from Study
  Country: US (occurrence: US)
  Receive Date: 20210511
  Receipt Date: 20210812
  Transmission Date: 20211014
  Serious: Yes (Hospitalization, Other)
  Sender: FDA-Public Use
  Company Number: US-AMGEN-USACT2021053878

PATIENT
  Age: 16 Year
  Sex: Female
  Weight: 43.9 kg

DRUGS (11)
  1. CYCLOPHOSPHAMIDE. [Suspect]
     Active Substance: CYCLOPHOSPHAMIDE
     Indication: B PRECURSOR TYPE ACUTE LEUKAEMIA
     Dosage: UNK
     Route: 065
     Dates: start: 20200529
  2. ONCASPAR [Suspect]
     Active Substance: PEGASPARGASE
     Indication: B PRECURSOR TYPE ACUTE LEUKAEMIA
     Dosage: UNK (TOTAL DOSE 3300 IU)
     Route: 065
     Dates: start: 20200420
  3. LEUCOVORIN CALCIUM. [Suspect]
     Active Substance: LEUCOVORIN CALCIUM
     Indication: B PRECURSOR TYPE ACUTE LEUKAEMIA
     Dosage: UNK (TOTAL DOSE 15 MG)
     Route: 065
     Dates: start: 20200425
  4. CYTARABINE. [Suspect]
     Active Substance: CYTARABINE
     Indication: B PRECURSOR TYPE ACUTE LEUKAEMIA
     Dosage: UNK
     Route: 065
     Dates: start: 20200426
  5. MERCAPTOPURINE. [Suspect]
     Active Substance: MERCAPTOPURINE
     Indication: B PRECURSOR TYPE ACUTE LEUKAEMIA
     Dosage: UNK
     Route: 065
     Dates: start: 20200529
  6. VINCRISTINE SULFATE. [Suspect]
     Active Substance: VINCRISTINE SULFATE
     Indication: B PRECURSOR TYPE ACUTE LEUKAEMIA
     Dosage: UNK (TOTAL DOSE 3.91 MG)
     Route: 065
     Dates: start: 20200417
  7. BLINATUMOMAB [Suspect]
     Active Substance: BLINATUMOMAB
     Indication: B PRECURSOR TYPE ACUTE LEUKAEMIA
     Dosage: 15 MICROGRAM/SQ. METER, QD
     Route: 042
     Dates: start: 20200812
  8. PREDNISONE. [Suspect]
     Active Substance: PREDNISONE
     Indication: B PRECURSOR TYPE ACUTE LEUKAEMIA
     Dosage: UNK
     Route: 065
  9. METHOTREXATE. [Suspect]
     Active Substance: METHOTREXATE
     Indication: B PRECURSOR TYPE ACUTE LEUKAEMIA
     Dosage: UNK (TOTAL DOSE 15 MG)
     Route: 037
     Dates: start: 20200424
  10. DEXAMETHASONE. [Suspect]
     Active Substance: DEXAMETHASONE
     Indication: B PRECURSOR TYPE ACUTE LEUKAEMIA
     Dosage: UNK (TOTAL DOSE 91 MG)
     Route: 065
     Dates: start: 20200812
  11. DOXORUBICIN HYDROCHLORIDE. [Suspect]
     Active Substance: DOXORUBICIN HYDROCHLORIDE
     Indication: B PRECURSOR TYPE ACUTE LEUKAEMIA
     Dosage: UNK (TOTAL DOSE 65 MG)
     Route: 065
     Dates: start: 20210112

REACTIONS (11)
  - Acute kidney injury [Recovered/Resolved with Sequelae]
  - Hypocalcaemia [Recovered/Resolved with Sequelae]
  - Diarrhoea [Recovered/Resolved]
  - Nausea [Recovered/Resolved]
  - Hyperglycaemia [Unknown]
  - Hypophosphataemia [Recovered/Resolved with Sequelae]
  - Hypotension [Recovered/Resolved with Sequelae]
  - Hypoxia [Recovered/Resolved with Sequelae]
  - Blood creatinine increased [Recovered/Resolved with Sequelae]
  - Dehydration [Recovered/Resolved]
  - Vomiting [Recovered/Resolved]

NARRATIVE: CASE EVENT DATE: 20210119
